FAERS Safety Report 23532560 (Version 1)
Quarter: 2024Q1

REPORT INFORMATION
  Report Type: Spontaneous
  Country: IN (occurrence: IN)
  Receive Date: 20240216
  Receipt Date: 20240216
  Transmission Date: 20240410
  Serious: Yes (Other)
  Sender: FDA-Public Use
  Company Number: IN-002147023-NVSC2024IN029123

PATIENT

DRUGS (1)
  1. RUXOLITINIB [Suspect]
     Active Substance: RUXOLITINIB
     Indication: Product used for unknown indication
     Dosage: 15 MG, BID
     Route: 048

REACTIONS (6)
  - Abdominal distension [Unknown]
  - Fatigue [Unknown]
  - Myeloproliferative neoplasm [Unknown]
  - Splenomegaly [Unknown]
  - Asthenia [Unknown]
  - Weight decreased [Unknown]
